FAERS Safety Report 5149594-1 (Version None)
Quarter: 2006Q4

REPORT INFORMATION
  Report Type: 
  Country: None (occurrence: None)
  Receive Date: 20061113
  Receipt Date: 20060530
  Transmission Date: 20070319
  Serious: No
  Sender: FDA-Public Use
  Company Number: US-GLAXOSMITHKLINE-A0607280A

PATIENT
  Age: 62 Year
  Sex: Male

DRUGS (3)
  1. COREG [Suspect]
     Dosage: 12.5MG TWICE PER DAY
     Route: 048
     Dates: start: 19960101
  2. LEVOCABASTINE [Concomitant]
  3. HYZAAR [Concomitant]

REACTIONS (2)
  - EYE PRURITUS [None]
  - VISION BLURRED [None]
